FAERS Safety Report 8794724 (Version 1)
Quarter: 2012Q4

REPORT INFORMATION
  Report Type: 
  Country: DE (occurrence: DE)
  Receive Date: 20120917
  Receipt Date: 20120917
  Transmission Date: 20130627
  Serious: Yes (Death)
  Sender: FDA-Public Use
  Company Number: DE-FRI-1000038184

PATIENT
  Sex: Female

DRUGS (8)
  1. MEMANTINE [Suspect]
     Dosage: 15 mg (10 mg in am, 5 mg in pm)
  2. ATACAND [Concomitant]
  3. CONCOR [Concomitant]
  4. MADOPAR [Concomitant]
  5. L-THYROXIN [Concomitant]
  6. ERGENYL CHRONO [Concomitant]
  7. ESOMEPRAZOL [Concomitant]
  8. MAGNESIUM DIASPORAL [Concomitant]

REACTIONS (2)
  - Death [Fatal]
  - Hyponatraemia [Not Recovered/Not Resolved]
